FAERS Safety Report 13555262 (Version 2)
Quarter: 2017Q2

REPORT INFORMATION
  Report Type: Report from Study
  Country: CO (occurrence: CO)
  Receive Date: 20170517
  Receipt Date: 20170619
  Transmission Date: 20170830
  Serious: Yes (Hospitalization, Other)
  Sender: FDA-Public Use
  Company Number: CO-JNJFOC-20170514370

PATIENT
  Age: 62 Year
  Sex: Male
  Weight: 68 kg

DRUGS (1)
  1. IMBRUVICA [Suspect]
     Active Substance: IBRUTINIB
     Indication: CHRONIC LYMPHOCYTIC LEUKAEMIA
     Route: 048
     Dates: start: 20161202

REACTIONS (7)
  - Sinusitis [Recovered/Resolved]
  - Melaena [Recovered/Resolved]
  - Gastrooesophageal reflux disease [Unknown]
  - Lung infection [Recovered/Resolved]
  - Internal haemorrhage [Unknown]
  - Blindness [Unknown]
  - Parasitic gastroenteritis [Recovering/Resolving]

NARRATIVE: CASE EVENT DATE: 201703
